FAERS Safety Report 21046117 (Version 4)
Quarter: 2022Q4

REPORT INFORMATION
  Report Type: Report from Study
  Country: IT (occurrence: IT)
  Receive Date: 20220706
  Receipt Date: 20221102
  Transmission Date: 20230112
  Serious: Yes (Death, Hospitalization)
  Sender: FDA-Public Use
  Company Number: IT-AMGEN-ITACT2022088819

PATIENT
  Age: 8 Year
  Sex: Male

DRUGS (7)
  1. CARFILZOMIB [Suspect]
     Active Substance: CARFILZOMIB
     Indication: Acute lymphocytic leukaemia
     Dosage: 48 MILLIGRAM
     Route: 040
     Dates: start: 20220210
  2. CEFTAZIDIME [Concomitant]
     Active Substance: CEFTAZIDIME
     Dosage: 900 MILLIGRAM
     Route: 042
     Dates: start: 20220409, end: 20220429
  3. TEICOPLANIN [Concomitant]
     Active Substance: TEICOPLANIN
     Dosage: 250 MILLIGRAM
     Route: 042
     Dates: start: 20220412, end: 20220425
  4. VORICONAZOLE [Concomitant]
     Active Substance: VORICONAZOLE
     Dosage: UNK
     Dates: start: 20220425, end: 20220429
  5. VENETOCLAX [Concomitant]
     Active Substance: VENETOCLAX
     Dosage: UNK
     Dates: start: 20220315, end: 20220411
  6. DECITABINE [Concomitant]
     Active Substance: DECITABINE
     Dosage: UNK
     Dates: start: 20220315, end: 20220411
  7. AMIKACIN [Concomitant]
     Active Substance: AMIKACIN
     Dosage: 500 MILLIGRAM
     Route: 040
     Dates: start: 20220409, end: 20220414

REACTIONS (1)
  - Acute lymphocytic leukaemia [Fatal]

NARRATIVE: CASE EVENT DATE: 20220505
